FAERS Safety Report 5638331-X (Version None)
Quarter: 2008Q1

REPORT INFORMATION
  Report Type: 
  Country: None (occurrence: None)
  Receive Date: 20080222
  Receipt Date: 20080213
  Transmission Date: 20080703
  Serious: Yes (Hospitalization)
  Sender: FDA-Public Use
  Company Number: GXKR2008NZ01640

PATIENT
  Age: 67 Year
  Sex: Male

DRUGS (5)
  1. OMEPRAZOLE [Suspect]
     Indication: GASTROOESOPHAGEAL REFLUX DISEASE
  2. CILAZAPRIL (CILAZAPRIL) [Concomitant]
  3. METOPROLOL TARTRATE [Concomitant]
  4. ALLOPURINOL [Concomitant]
  5. MAGNESIUM SUPPLEMENTS (MAGNESIUM) [Concomitant]

REACTIONS (5)
  - GRAND MAL CONVULSION [None]
  - HYPOCALCAEMIA [None]
  - HYPOMAGNESAEMIA [None]
  - MALABSORPTION [None]
  - THERAPEUTIC RESPONSE DECREASED [None]
